FAERS Safety Report 17922836 (Version 2)
Quarter: 2020Q2

REPORT INFORMATION
  Report Type: Spontaneous
  Country: CH (occurrence: CH)
  Receive Date: 20200622
  Receipt Date: 20200624
  Transmission Date: 20200714
  Serious: Yes (Other)
  Sender: FDA-Public Use
  Company Number: CH-BEH-2020118646

PATIENT
  Age: 82 Year
  Sex: Female

DRUGS (3)
  1. PRIVIGEN [Suspect]
     Active Substance: HUMAN IMMUNOGLOBULIN G
     Dosage: UNK
     Route: 042
     Dates: start: 202005
  2. PRIVIGEN [Suspect]
     Active Substance: HUMAN IMMUNOGLOBULIN G
     Dosage: UNK
     Route: 042
     Dates: start: 202005
  3. PRIVIGEN [Suspect]
     Active Substance: HUMAN IMMUNOGLOBULIN G
     Dosage: UNK
     Route: 042
     Dates: start: 20200512

REACTIONS (9)
  - Bacteraemia [Recovered/Resolved]
  - Product contamination microbial [Recovered/Resolved]
  - Pseudomonas test positive [Recovered/Resolved]
  - Bacteroides test positive [Recovered/Resolved]
  - Headache [Recovered/Resolved]
  - Pyrexia [Recovered/Resolved]
  - Parvimonas test positive [Recovered/Resolved]
  - Device related infection [Unknown]
  - Blood culture positive [Recovered/Resolved]

NARRATIVE: CASE EVENT DATE: 202005
